FAERS Safety Report 15018391 (Version 1)
Quarter: 2018Q2

REPORT INFORMATION
  Report Type: Spontaneous
  Country: US (occurrence: US)
  Receive Date: 20180523
  Receipt Date: 20180523
  Transmission Date: 20180711
  Serious: No
  Sender: FDA-Public Use
  Company Number: None

PATIENT
  Age: 69 Year
  Sex: Female

DRUGS (1)
  1. TASIGNA [Suspect]
     Active Substance: NILOTINIB

REACTIONS (3)
  - Blood bilirubin increased [None]
  - Blood pressure increased [None]
  - Rheumatoid arthritis [None]

NARRATIVE: CASE EVENT DATE: 20180523
